FAERS Safety Report 5357825-8 (Version None)
Quarter: 2007Q2

REPORT INFORMATION
  Report Type: 
  Country: None (occurrence: None)
  Receive Date: 20070530
  Receipt Date: 20061027
  Transmission Date: 20071010
  Serious: Yes (Other)
  Sender: FDA-Public Use
  Company Number: US200610005296

PATIENT
  Age: 49 Year
  Sex: Male
  Weight: 112.9 kg

DRUGS (6)
  1. ZYPREXA [Suspect]
     Indication: SCHIZOAFFECTIVE DISORDER
     Dosage: 10 MG, DAILY (1/D), ORAL
     Route: 048
     Dates: start: 19950101, end: 20060101
  2. WELLBUTRIN [Concomitant]
  3. ATIVAN [Concomitant]
  4. DEPAKOTE [Concomitant]
  5. AMBIEN [Concomitant]
  6. LITHIUM CARBONATE [Concomitant]

REACTIONS (2)
  - FEELING ABNORMAL [None]
  - WEIGHT INCREASED [None]
